FAERS Safety Report 7336537-5 (Version None)
Quarter: 2011Q1

REPORT INFORMATION
  Report Type: 
  Country: None (occurrence: None)
  Receive Date: 20110307
  Receipt Date: 20110228
  Transmission Date: 20110831
  Serious: Yes (Other)
  Sender: FDA-Public Use
  Company Number: US-US-EMD SERONO, INC.-7004604

PATIENT
  Sex: Female
  Weight: 58 kg

DRUGS (3)
  1. REBIF [Suspect]
     Indication: MULTIPLE SCLEROSIS
     Route: 058
     Dates: start: 20091207, end: 20100503
  2. LAMICTAL [Concomitant]
     Indication: PETIT MAL EPILEPSY
     Route: 048
     Dates: start: 19920601
  3. LAMICTAL [Concomitant]
     Route: 048

REACTIONS (1)
  - GRAND MAL CONVULSION [None]
